FAERS Safety Report 10029012 (Version 2)
Quarter: 2014Q2

REPORT INFORMATION
  Report Type: Report from Study
  Country: BR (occurrence: BR)
  Receive Date: 20140321
  Receipt Date: 20140424
  Transmission Date: 20141212
  Serious: Yes (Hospitalization, Other)
  Sender: FDA-Public Use
  Company Number: PHHY2014BR033088

PATIENT
  Age: 72 Year
  Sex: Male
  Weight: 97 kg

DRUGS (2)
  1. DIOVAN [Suspect]
     Indication: HYPERTENSION
     Dosage: 1 DF (VALS 320 MG), DAILY
     Route: 048
     Dates: end: 201109
  2. OMEPRAZOLE [Concomitant]
     Indication: GASTROINTESTINAL DISORDER
     Dosage: UNK UKN, UNK

REACTIONS (5)
  - Cerebrovascular accident [Recovered/Resolved]
  - Amnesia [Recovered/Resolved]
  - Coagulopathy [Unknown]
  - Cardiac disorder [Unknown]
  - Ocular hyperaemia [Unknown]
